FAERS Safety Report 13155882 (Version 1)
Quarter: 2017Q1

REPORT INFORMATION
  Report Type: Spontaneous
  Country: US (occurrence: US)
  Receive Date: 20170126
  Receipt Date: 20170126
  Transmission Date: 20170428
  Serious: No
  Sender: FDA-Public Use
  Company Number: US-ROCHE-760523

PATIENT
  Sex: Female
  Weight: 78.5 kg

DRUGS (3)
  1. DIAZEPAM. [Suspect]
     Active Substance: DIAZEPAM
     Indication: INTRACRANIAL ANEURYSM
     Route: 065
  2. VALIUM [Suspect]
     Active Substance: DIAZEPAM
     Indication: INTRACRANIAL ANEURYSM
     Route: 048
  3. FENTANYL TRANSDERMAL SYSTEM [Concomitant]
     Active Substance: FENTANYL
     Route: 065

REACTIONS (3)
  - Drug effect decreased [Unknown]
  - Somnolence [Unknown]
  - Lethargy [Unknown]
